FAERS Safety Report 9898419 (Version 2)
Quarter: 2014Q1

REPORT INFORMATION
  Report Type: Spontaneous
  Country: TW (occurrence: TW)
  Receive Date: 20140214
  Receipt Date: 20140220
  Transmission Date: 20141002
  Serious: Yes (Other)
  Sender: FDA-Public Use
  Company Number: TW-PFIZER INC-2014037911

PATIENT
  Age: 82 Year
  Sex: Male

DRUGS (2)
  1. DIFLUCAN [Suspect]
     Dosage: 200 MG, QD
     Route: 042
     Dates: start: 20140202, end: 20140204
  2. DIFLUCAN [Suspect]
     Dosage: 400 MG, QD
     Route: 042
     Dates: start: 20140205, end: 20140210

REACTIONS (1)
  - Pemphigoid [Not Recovered/Not Resolved]
